FAERS Safety Report 12327413 (Version 1)
Quarter: 2016Q2

REPORT INFORMATION
  Report Type: Spontaneous
  Country: US (occurrence: US)
  Receive Date: 20160503
  Receipt Date: 20160503
  Transmission Date: 20160815
  Serious: Yes (Hospitalization, Other)
  Sender: FDA-Public Use
  Company Number: US-CIPLA LTD.-2016US04263

PATIENT

DRUGS (5)
  1. GABAPENTIN. [Suspect]
     Active Substance: GABAPENTIN
     Dosage: 300 MG,2 CAPSULES, TID
     Route: 048
  2. LOSARTAN AND HYDROCHLOROTHIAZIDE [Concomitant]
     Active Substance: HYDROCHLOROTHIAZIDE\LOSARTAN POTASSIUM
     Indication: HYPERTENSION
     Dosage: 12.5 MG, QD
     Route: 065
  3. GABAPENTIN. [Suspect]
     Active Substance: GABAPENTIN
     Indication: BURNING SENSATION
     Dosage: 300 MG, 2 CAPSULES, QD
     Route: 048
     Dates: start: 2014
  4. METOPROLOL. [Concomitant]
     Active Substance: METOPROLOL
     Indication: HYPERTENSION
     Dosage: 50 MG, QD
     Route: 065
  5. OXYCODONE [Concomitant]
     Active Substance: OXYCODONE
     Indication: PAIN
     Dosage: 2.5 MG, AS NEEDED, TID, RECEIVED AFTER HIP FUSION
     Route: 065
     Dates: start: 201603

REACTIONS (6)
  - Dyspnoea [Recovering/Resolving]
  - Musculoskeletal discomfort [Unknown]
  - Pulmonary thrombosis [Not Recovered/Not Resolved]
  - Drug ineffective [Unknown]
  - Venous thrombosis limb [Not Recovered/Not Resolved]
  - Product substitution issue [Unknown]

NARRATIVE: CASE EVENT DATE: 201509
